FAERS Safety Report 23335238 (Version 1)
Quarter: 2023Q4

REPORT INFORMATION
  Report Type: Spontaneous
  Country: FR (occurrence: FR)
  Receive Date: 20231225
  Receipt Date: 20231225
  Transmission Date: 20240109
  Serious: Yes (Other)
  Sender: FDA-Public Use
  Company Number: FR-AFSSAPS-SE2023001044

PATIENT
  Age: 67 Year
  Sex: Female
  Weight: 73 kg

DRUGS (5)
  1. NEBIVOLOL [Suspect]
     Active Substance: NEBIVOLOL
     Indication: Myocardial infarction
     Dosage: 5 MILLIGRAM, ONCE A DAY
     Route: 048
     Dates: start: 20230606
  2. PANTOPRAZOLE [Suspect]
     Active Substance: PANTOPRAZOLE
     Indication: Barrett^s oesophagus
     Dosage: 20 MILLIGRAM, ONCE A DAY
     Route: 048
     Dates: start: 20230606
  3. ASPIRIN DL-LYSINE [Suspect]
     Active Substance: ASPIRIN DL-LYSINE
     Indication: Myocardial infarction
     Dosage: 100 MILLIGRAM, ONCE A DAY
     Route: 048
     Dates: start: 20230606
  4. TICAGRELOR [Suspect]
     Active Substance: TICAGRELOR
     Indication: Myocardial infarction
     Dosage: 180 MILLIGRAM, ONCE A DAY
     Route: 048
     Dates: start: 20230606
  5. TAHOR [Concomitant]
     Active Substance: ATORVASTATIN CALCIUM
     Indication: Dyslipidaemia
     Dosage: 10 MILLIGRAM, ONCE A DAY
     Route: 048
     Dates: start: 202302, end: 20231003

REACTIONS (1)
  - Cholestatic liver injury [Not Recovered/Not Resolved]

NARRATIVE: CASE EVENT DATE: 20230828
